FAERS Safety Report 16973836 (Version 1)
Quarter: 2019Q4

REPORT INFORMATION
  Report Type: Spontaneous
  Country: US (occurrence: US)
  Receive Date: 20190912
  Receipt Date: 20190912
  Transmission Date: 20200122
  Serious: Yes (Hospitalization)
  Sender: FDA-Public Use
  Company Number: None

PATIENT
  Age: 67 Year
  Sex: Female

DRUGS (1)
  1. NEXAVAR [Suspect]
     Active Substance: SORAFENIB
     Indication: HEPATIC CANCER
     Route: 048
     Dates: start: 201908, end: 201908

REACTIONS (4)
  - Blood potassium decreased [None]
  - Blood urine present [None]
  - Heart rate increased [None]
  - Blood magnesium decreased [None]

NARRATIVE: CASE EVENT DATE: 20190829
